FAERS Safety Report 11019129 (Version 4)
Quarter: 2016Q1

REPORT INFORMATION
  Report Type: Report from Study
  Country: BR (occurrence: BR)
  Receive Date: 20150412
  Receipt Date: 20160111
  Transmission Date: 20160525
  Serious: Yes (Hospitalization, Other)
  Sender: FDA-Public Use
  Company Number: PHHY2015BR041584

PATIENT
  Sex: Male

DRUGS (2)
  1. SANDOSTATIN LAR DEPOT [Suspect]
     Active Substance: OCTREOTIDE ACETATE
     Dosage: 20 MG, EVERY 28 DAYS
     Route: 030
  2. SANDOSTATIN LAR DEPOT [Suspect]
     Active Substance: OCTREOTIDE ACETATE
     Indication: ACROMEGALY
     Dosage: 30 MG, EVERY 28/30 DAYS
     Route: 030

REACTIONS (15)
  - Limb discomfort [Recovering/Resolving]
  - General physical health deterioration [Recovered/Resolved]
  - Atrophy [Unknown]
  - Haemorrhoids [Recovered/Resolved]
  - Heart rate decreased [Recovered/Resolved]
  - Parkinsonian gait [Unknown]
  - Musculoskeletal pain [Recovering/Resolving]
  - Weight decreased [Recovering/Resolving]
  - Arthralgia [Recovering/Resolving]
  - Hand deformity [Recovered/Resolved]
  - Cardiomegaly [Recovered/Resolved]
  - Bone deformity [Recovered/Resolved]
  - Prognathism [Recovered/Resolved]
  - Hypokinesia [Not Recovered/Not Resolved]
  - Fatigue [Unknown]
